FAERS Safety Report 8048264-X (Version None)
Quarter: 2012Q1

REPORT INFORMATION
  Report Type: 
  Country: None (occurrence: None)
  Receive Date: 20120117
  Receipt Date: 20120112
  Transmission Date: 20120608
  Serious: Yes (Other)
  Sender: FDA-Public Use
  Company Number: US-TEVA-317343USA

PATIENT
  Sex: Male

DRUGS (4)
  1. ALPRAZOLAM [Concomitant]
  2. TOPIRAMATE [Suspect]
  3. SERTRALINE HYDROCHLORIDE [Concomitant]
  4. CARBAMAZEPINE [Suspect]

REACTIONS (4)
  - INFECTION [None]
  - PANIC ATTACK [None]
  - URINARY TRACT OBSTRUCTION [None]
  - CARDIAC INFECTION [None]
